FAERS Safety Report 24455831 (Version 3)
Quarter: 2024Q4

REPORT INFORMATION
  Report Type: Spontaneous
  Country: JP (occurrence: JP)
  Receive Date: 20241017
  Receipt Date: 20241125
  Transmission Date: 20250115
  Serious: Yes (Hospitalization, Other)
  Sender: GLAXOSMITHKLINE
  Company Number: None

PATIENT

DRUGS (6)
  1. MOMELOTINIB [Suspect]
     Active Substance: MOMELOTINIB
     Indication: Myelofibrosis
     Dosage: 200 MG, 1D
     Dates: start: 20241003
  2. HYDREA [Concomitant]
     Active Substance: HYDROXYUREA
     Indication: Essential thrombocythaemia
     Dosage: 500 MG, QD
     Dates: start: 20180813
  3. HYDREA [Concomitant]
     Active Substance: HYDROXYUREA
     Dosage: 500 MG, QOD
     Route: 048
     Dates: start: 20240521, end: 20240805
  4. ASPIRIN [Concomitant]
     Active Substance: ASPIRIN
     Indication: Essential thrombocythaemia
     Dosage: UNK
     Route: 048
     Dates: start: 20180813, end: 20241002
  5. RUXOLITINIB PHOSPHATE [Concomitant]
     Active Substance: RUXOLITINIB PHOSPHATE
     Indication: Myelofibrosis
     Dosage: 10 MG, QD
     Dates: start: 20240806
  6. RUXOLITINIB PHOSPHATE [Concomitant]
     Active Substance: RUXOLITINIB PHOSPHATE
     Dosage: 20 MG, QD
     Route: 048
     Dates: start: 20240903, end: 20241002

REACTIONS (3)
  - Depressed level of consciousness [Not Recovered/Not Resolved]
  - Myelofibrosis [Not Recovered/Not Resolved]
  - Condition aggravated [Not Recovered/Not Resolved]

NARRATIVE: CASE EVENT DATE: 20241009
